FAERS Safety Report 9638790 (Version 1)
Quarter: 2013Q4

REPORT INFORMATION
  Report Type: Spontaneous
  Country: JP (occurrence: None)
  Receive Date: 20131018
  Receipt Date: 20131018
  Transmission Date: 20140711
  Serious: Yes (Death)
  Sender: FDA-Public Use
  Company Number: C-13-097

PATIENT
  Age: 8 Decade
  Sex: Female
  Weight: 57 kg

DRUGS (1)
  1. CHLORPHENIRAMINE [Suspect]

REACTIONS (3)
  - Memory impairment [None]
  - Drowning [None]
  - Accidental overdose [None]
